FAERS Safety Report 5148742-7 (Version None)
Quarter: 2006Q4

REPORT INFORMATION
  Report Type: 
  Country: None (occurrence: None)
  Receive Date: 20061107
  Receipt Date: 20061024
  Transmission Date: 20070319
  Serious: Yes (Death, Hospitalization)
  Sender: FDA-Public Use
  Company Number: 2006BI015354

PATIENT
  Age: 54 Year
  Sex: Female
  Weight: 46 kg

DRUGS (8)
  1. AVONEX [Suspect]
     Indication: MULTIPLE SCLEROSIS
     Dosage: 30 UG QW IM
     Route: 030
     Dates: start: 20010101, end: 20061017
  2. DILANTIN [Concomitant]
  3. KEPPRA [Concomitant]
  4. ATROVENT [Concomitant]
  5. FLOVENT [Concomitant]
  6. IBUPROFEN [Concomitant]
  7. PAXIL [Concomitant]
  8. TRILEPTAL [Concomitant]

REACTIONS (16)
  - ARTHRALGIA [None]
  - CARDIAC ARREST [None]
  - CHRONIC OBSTRUCTIVE PULMONARY DISEASE [None]
  - DELIRIUM [None]
  - FALL [None]
  - LOCALISED INFECTION [None]
  - MULTIPLE SCLEROSIS [None]
  - NECROTISING FASCIITIS [None]
  - OEDEMA PERIPHERAL [None]
  - PAIN IN EXTREMITY [None]
  - PARTIAL SEIZURES WITH SECONDARY GENERALISATION [None]
  - PATHOGEN RESISTANCE [None]
  - PROCEDURAL COMPLICATION [None]
  - SEPTIC SHOCK [None]
  - STAPHYLOCOCCAL INFECTION [None]
  - WOUND INFECTION BACTERIAL [None]
